FAERS Safety Report 8936827 (Version 1)
Quarter: 2012Q4

REPORT INFORMATION
  Report Type: 
  Country: JP (occurrence: JP)
  Receive Date: 20121130
  Receipt Date: 20121130
  Transmission Date: 20130627
  Serious: Yes (Other)
  Sender: FDA-Public Use
  Company Number: PHHY2012JP109967

PATIENT
  Age: 81 Year
  Sex: Female

DRUGS (3)
  1. RIVASTIGMIN [Suspect]
     Indication: DEMENTIA ALZHEIMER^S TYPE
     Dosage: 4.5 mg, QD
     Route: 062
     Dates: start: 20120827
  2. RIVASTIGMIN [Suspect]
     Dosage: 9 mg, QD
     Route: 062
  3. RIVASTIGMIN [Suspect]
     Dosage: 13.5 mg, QD
     Route: 062
     Dates: end: 20121122

REACTIONS (1)
  - Blood cholinesterase decreased [Unknown]
